FAERS Safety Report 4698954-1 (Version None)
Quarter: 2005Q2

REPORT INFORMATION
  Report Type: 
  Country: None (occurrence: None)
  Receive Date: 20050623
  Receipt Date: 20050623
  Transmission Date: 20051028
  Serious: Yes (Other)
  Sender: FDA-Public Use
  Company Number: None

PATIENT
  Age: 22 Year
  Sex: Female

DRUGS (1)
  1. AMIKACIN [Suspect]
     Dosage: 500 MG IV  Q 8 HRS.
     Route: 042
     Dates: start: 20050602, end: 20050621

REACTIONS (2)
  - EAR DISCOMFORT [None]
  - TINNITUS [None]
